FAERS Safety Report 4522650-4 (Version None)
Quarter: 2004Q4

REPORT INFORMATION
  Report Type: 
  Country: None (occurrence: None)
  Receive Date: 20041207
  Receipt Date: 20041122
  Transmission Date: 20050328
  Serious: No
  Sender: FDA-Public Use
  Company Number: 2004GB02808

PATIENT
  Age: 41 Year
  Sex: Male

DRUGS (5)
  1. SEROQUEL [Suspect]
     Indication: SCHIZOPHRENIA
     Dosage: 100 MG PO
     Route: 048
     Dates: start: 20041104, end: 20041106
  2. OLANZAPINE [Concomitant]
  3. VENLAFAXINE HCL [Concomitant]
  4. CHLORPROMAZINE [Concomitant]
  5. CARBAMAZEPINE [Concomitant]

REACTIONS (6)
  - ARTHRALGIA [None]
  - HYPERSENSITIVITY [None]
  - PARAESTHESIA ORAL [None]
  - RASH MACULAR [None]
  - SWOLLEN TONGUE [None]
  - TACHYPNOEA [None]
